FAERS Safety Report 13509831 (Version 1)
Quarter: 2017Q2

REPORT INFORMATION
  Report Type: Spontaneous
  Country: US (occurrence: US)
  Receive Date: 20170503
  Receipt Date: 20170503
  Transmission Date: 20170830
  Serious: No
  Sender: FDA-Public Use
  Company Number: US-SA-2017SA046915

PATIENT
  Sex: Male

DRUGS (2)
  1. PRALUENT [Suspect]
     Active Substance: ALIROCUMAB
     Indication: BLOOD CHOLESTEROL INCREASED
     Route: 065
  2. ALIROCUMAB PREFILLED PEN [Concomitant]
     Active Substance: ALIROCUMAB
     Indication: BLOOD CHOLESTEROL INCREASED

REACTIONS (15)
  - Nausea [Unknown]
  - Muscular weakness [Unknown]
  - Chills [Unknown]
  - Vision blurred [Unknown]
  - Eructation [Unknown]
  - Myalgia [Unknown]
  - Musculoskeletal chest pain [Unknown]
  - Injection site pain [Unknown]
  - Decreased appetite [Unknown]
  - Malaise [Unknown]
  - Heart rate increased [Unknown]
  - Insomnia [Unknown]
  - Palpitations [Unknown]
  - Tinnitus [Unknown]
  - Chest discomfort [Unknown]
